FAERS Safety Report 25021561 (Version 1)
Quarter: 2025Q1

REPORT INFORMATION
  Report Type: Spontaneous
  Country: US (occurrence: None)
  Receive Date: 20250228
  Receipt Date: 20250228
  Transmission Date: 20250408
  Serious: No
  Sender: ALLEGIS PHARMACEUTICALS
  Company Number: US-Allegis Pharmaceuticals, LLC-APL202411-000121

PATIENT

DRUGS (1)
  1. HYDROCORTISONE ACETATE\PRAMOXINE HYDROCHLORIDE [Suspect]
     Active Substance: HYDROCORTISONE ACETATE\PRAMOXINE HYDROCHLORIDE
     Indication: Product used for unknown indication

REACTIONS (1)
  - Product prescribing error [Unknown]
